FAERS Safety Report 9389990 (Version 1)
Quarter: 2013Q3

REPORT INFORMATION
  Report Type: Spontaneous
  Country: US (occurrence: US)
  Receive Date: 20130708
  Receipt Date: 20130708
  Transmission Date: 20140515
  Serious: No
  Sender: FDA-Public Use
  Company Number: US-AMGEN-USASP2013045026

PATIENT
  Age: 31 Year
  Sex: Female

DRUGS (2)
  1. ENBREL [Suspect]
     Indication: PSORIATIC ARTHROPATHY
     Dosage: 25 MG, 4 TIMES/WK
     Route: 065
     Dates: start: 20081201, end: 2012
  2. ENBREL [Suspect]
     Indication: PSORIASIS

REACTIONS (3)
  - Drug ineffective [Not Recovered/Not Resolved]
  - Blood test abnormal [Recovered/Resolved]
  - Lung infection [Recovered/Resolved]
